FAERS Safety Report 8395571-7 (Version None)
Quarter: 2012Q2

REPORT INFORMATION
  Report Type: 
  Country: None (occurrence: None)
  Receive Date: 20120530
  Receipt Date: 20110902
  Transmission Date: 20120825
  Serious: No
  Sender: FDA-Public Use
  Company Number: US-GLAXOSMITHKLINE-A0943967A

PATIENT
  Age: 49 Year
  Sex: Male

DRUGS (1)
  1. VENTOLIN [Suspect]
     Route: 065
     Dates: start: 20110801

REACTIONS (3)
  - OVERDOSE [None]
  - NASOPHARYNGITIS [None]
  - LUNG DISORDER [None]
